FAERS Safety Report 19402343 (Version 1)
Quarter: 2021Q2

REPORT INFORMATION
  Report Type: Spontaneous
  Country: CN (occurrence: CN)
  Receive Date: 20210611
  Receipt Date: 20210611
  Transmission Date: 20210717
  Serious: Yes (Other)
  Sender: FDA-Public Use
  Company Number: CN-ROCHE-2844422

PATIENT
  Age: 73 Year
  Sex: Female

DRUGS (6)
  1. RITUXIMAB. [Suspect]
     Active Substance: RITUXIMAB
     Indication: MARGINAL ZONE LYMPHOMA STAGE IV
     Dosage: DAY0; R?REDUCED CHOP REGIMEN AND RI REGIMEN
     Route: 065
  2. PREDNISONE. [Suspect]
     Active Substance: PREDNISONE
     Indication: MARGINAL ZONE LYMPHOMA STAGE IV
     Dosage: R?REDUCED CHOP REGIMEN
     Route: 065
  3. IBRUTINIB [Suspect]
     Active Substance: IBRUTINIB
     Indication: MARGINAL ZONE LYMPHOMA STAGE IV
     Dosage: PER DAY; RI REGIMEN
     Route: 065
  4. CYCLOPHOSPHAMIDE. [Suspect]
     Active Substance: CYCLOPHOSPHAMIDE
     Indication: MARGINAL ZONE LYMPHOMA STAGE IV
     Dosage: DAY1; R?REDUCED CHOP REGIMEN
     Route: 065
  5. EPIRUBICIN [Suspect]
     Active Substance: EPIRUBICIN
     Indication: MARGINAL ZONE LYMPHOMA STAGE IV
     Dosage: DAY1; R?REDUCED CHOP REGIMEN
     Route: 065
  6. VINDESINE [Suspect]
     Active Substance: VINDESINE
     Indication: MARGINAL ZONE LYMPHOMA STAGE IV
     Dosage: R?REDUCED CHOP REGIMEN
     Route: 065

REACTIONS (6)
  - Nausea [Unknown]
  - Agranulocytosis [Unknown]
  - Vomiting [Unknown]
  - Diarrhoea [Unknown]
  - Off label use [Unknown]
  - Platelet count decreased [Unknown]
